FAERS Safety Report 6696711-8 (Version None)
Quarter: 2010Q2

REPORT INFORMATION
  Report Type: 
  Country: None (occurrence: None)
  Receive Date: 20100422
  Receipt Date: 20100414
  Transmission Date: 20101027
  Serious: Yes (Other)
  Sender: FDA-Public Use
  Company Number: 2010SP021841

PATIENT
  Sex: Male

DRUGS (3)
  1. ESMERON (ROCURONIUM BROMIDE / 01245702 / ) [Suspect]
     Indication: NEUROMUSCULAR BLOCKADE
  2. BRIDION (SUGAMMADEX /00000000/) [Suspect]
     Indication: NEUROMUSCULAR BLOCKADE REVERSAL
  3. REMIFENTANIL (REMIFENTANIL) [Suspect]
     Indication: ANALGESIC THERAPY

REACTIONS (4)
  - BRONCHIAL OEDEMA [None]
  - BRONCHOSPASM [None]
  - CHOKING [None]
  - INCORRECT DOSE ADMINISTERED [None]
